FAERS Safety Report 21665686 (Version 1)
Quarter: 2022Q4

REPORT INFORMATION
  Report Type: Report from Study
  Country: US (occurrence: US)
  Receive Date: 20221201
  Receipt Date: 20221201
  Transmission Date: 20230113
  Serious: No
  Sender: FDA-Public Use
  Company Number: US-ABBVIE-4180293

PATIENT
  Sex: Female

DRUGS (3)
  1. SKYRIZI [Suspect]
     Active Substance: RISANKIZUMAB-RZAA
     Indication: Psoriasis
     Dosage: STRENGTH:150  MILLIGRAM
     Route: 058
     Dates: start: 202208
  2. SKYRIZI [Suspect]
     Active Substance: RISANKIZUMAB-RZAA
     Dosage: WEEK 4, STRENGTH:150  MILLIGRAM
     Route: 058
     Dates: start: 202206
  3. SKYRIZI [Suspect]
     Active Substance: RISANKIZUMAB-RZAA
     Dosage: WEEK 0, STRENGTH:150  MILLIGRAM
     Route: 058
     Dates: start: 20220510

REACTIONS (1)
  - Psoriasis [Unknown]
